FAERS Safety Report 8835118 (Version 1)
Quarter: 2012Q4

REPORT INFORMATION
  Report Type: 
  Country: JP (occurrence: JP)
  Receive Date: 20121011
  Receipt Date: 20121011
  Transmission Date: 20130627
  Serious: Yes (Other)
  Sender: FDA-Public Use
  Company Number: JP-ABBOTT-12P-087-0993636-00

PATIENT

DRUGS (1)
  1. VALPROIC ACID [Suspect]
     Indication: EPILEPSY
     Route: 065

REACTIONS (6)
  - Convulsion [Unknown]
  - Hyperammonaemia [Unknown]
  - Lethargy [Unknown]
  - Vomiting [Unknown]
  - Decreased appetite [Unknown]
  - Ataxia [Unknown]
